FAERS Safety Report 4474571-3 (Version None)
Quarter: 2004Q4

REPORT INFORMATION
  Report Type: 
  Country: None (occurrence: None)
  Receive Date: 20041012
  Receipt Date: 20041008
  Transmission Date: 20050328
  Serious: Yes (Other)
  Sender: FDA-Public Use
  Company Number: THQ2004A00886

PATIENT
  Sex: Male

DRUGS (5)
  1. LANSOPRAZOLE [Suspect]
     Dosage: 15 MG (15 MG, 1 IN 1 D)
  2. LOXAPINE SUCCINATE [Suspect]
     Dosage: 200 MG (100 MG, 2 IN 1 D)
  3. DIAZEPAM [Concomitant]
  4. RISPERDAL [Concomitant]
  5. PROCYCLIDIN (PROCYCLIDINE) [Concomitant]

REACTIONS (5)
  - ASCITES [None]
  - CARDIOMYOPATHY [None]
  - DYSPNOEA [None]
  - LIVER FUNCTION TEST ABNORMAL [None]
  - OEDEMA PERIPHERAL [None]
